FAERS Safety Report 9152186 (Version 1)
Quarter: 2013Q1

REPORT INFORMATION
  Report Type: Spontaneous
  Country: US (occurrence: US)
  Receive Date: 20130308
  Receipt Date: 20130308
  Transmission Date: 20140127
  Serious: No
  Sender: FDA-Public Use
  Company Number: US-PFIZER INC-2013024245

PATIENT
  Age: 80 Year
  Sex: Female

DRUGS (1)
  1. XELJANZ [Suspect]
     Indication: RHEUMATOID ARTHRITIS
     Dosage: 5 MG X 2, QD
     Route: 048
     Dates: start: 20130108, end: 20130226

REACTIONS (2)
  - Off label use [Unknown]
  - Abdominal discomfort [Not Recovered/Not Resolved]
